FAERS Safety Report 6773933-9 (Version None)
Quarter: 2010Q2

REPORT INFORMATION
  Report Type: 
  Country: None (occurrence: None)
  Receive Date: 20100615
  Receipt Date: 20100615
  Transmission Date: 20101027
  Serious: No
  Sender: FDA-Public Use
  Company Number: None

PATIENT
  Age: 25 Year
  Sex: Male

DRUGS (1)
  1. RISPERIDONE [Suspect]
     Indication: SCHIZOAFFECTIVE DISORDER
     Dosage: 3MG PO BID INCREASED FROM 2 MG BID ON 6/4/10
     Route: 048

REACTIONS (1)
  - PRIAPISM [None]
